FAERS Safety Report 9381796 (Version 5)
Quarter: 2013Q3

REPORT INFORMATION
  Report Type: Report from Study
  Country: RO (occurrence: RO)
  Receive Date: 20130703
  Receipt Date: 20130822
  Transmission Date: 20140515
  Serious: Yes (Hospitalization)
  Sender: FDA-Public Use
  Company Number: RO-ROCHE-1243989

PATIENT
  Age: 50 Year
  Sex: Female
  Weight: 74 kg

DRUGS (4)
  1. PEG-INTERFERON ALFA 2A [Suspect]
     Indication: CHRONIC HEPATITIS C
     Route: 058
     Dates: start: 20121023
  2. RIBAVIRIN [Suspect]
     Indication: CHRONIC HEPATITIS C
     Route: 048
     Dates: start: 20121023
  3. BLINDED TMC435 [Suspect]
     Indication: CHRONIC HEPATITIS C
     Route: 048
     Dates: start: 20121023, end: 20130113
  4. BLINDED TELAPREVIR [Suspect]
     Indication: CHRONIC HEPATITIS C
     Route: 065
     Dates: start: 20121023, end: 20130113

REACTIONS (2)
  - Thrombophlebitis [Recovered/Resolved]
  - Cellulitis [Recovered/Resolved]
